FAERS Safety Report 9647337 (Version 1)
Quarter: 2013Q4

REPORT INFORMATION
  Report Type: Report from Study
  Country: IE (occurrence: IE)
  Receive Date: 20131027
  Receipt Date: 20131027
  Transmission Date: 20140711
  Serious: Yes (Other)
  Sender: FDA-Public Use
  Company Number: IE-US-EMD SERONO, INC.-7244885

PATIENT
  Age: 29 Year
  Sex: Female

DRUGS (3)
  1. REBIF [Suspect]
     Indication: SECONDARY PROGRESSIVE MULTIPLE SCLEROSIS
     Route: 058
     Dates: start: 20030627, end: 20110105
  2. REBIF [Suspect]
     Route: 058
     Dates: start: 20110405, end: 20120402
  3. REBIF [Suspect]
     Route: 058
     Dates: start: 20130610

REACTIONS (2)
  - Lower respiratory tract infection [Unknown]
  - Burning sensation [Not Recovered/Not Resolved]
